FAERS Safety Report 17371505 (Version 1)
Quarter: 2020Q1

REPORT INFORMATION
  Report Type: Report from Study
  Country: PL (occurrence: PL)
  Receive Date: 20200205
  Receipt Date: 20200205
  Transmission Date: 20200409
  Serious: Yes (Hospitalization, Other)
  Sender: FDA-Public Use
  Company Number: PL-INVENTIA-000356

PATIENT
  Age: 68 Year
  Sex: Female

DRUGS (7)
  1. DULOXETINE. [Suspect]
     Active Substance: DULOXETINE
     Indication: ANTIDEPRESSANT THERAPY
  2. CHONDROITIN [Concomitant]
     Active Substance: CHONDROITIN
     Indication: OSTEOARTHRITIS
  3. PROPAFENONE. [Interacting]
     Active Substance: PROPAFENONE
     Indication: CARDIOVASCULAR DISORDER
  4. RIVAROXABAN [Concomitant]
     Active Substance: RIVAROXABAN
     Indication: CARDIOVASCULAR DISORDER
  5. TRAMADOL. [Concomitant]
     Active Substance: TRAMADOL
     Indication: OSTEOARTHRITIS
  6. BISOPROLOL [Concomitant]
     Active Substance: BISOPROLOL
     Indication: CARDIOVASCULAR DISORDER
  7. POTASSIUM [Concomitant]
     Active Substance: POTASSIUM
     Indication: CARDIOVASCULAR DISORDER

REACTIONS (3)
  - Granulocytopenia [Unknown]
  - Drug interaction [Unknown]
  - Drug level increased [Unknown]
